FAERS Safety Report 14961434 (Version 1)
Quarter: 2018Q2

REPORT INFORMATION
  Report Type: Spontaneous
  Country: US (occurrence: US)
  Receive Date: 20180601
  Receipt Date: 20180601
  Transmission Date: 20180711
  Serious: No
  Sender: FDA-Public Use
  Company Number: US-KITE, A GILEAD COMPANY-2048819

PATIENT
  Sex: Male

DRUGS (1)
  1. YESCARTA [Suspect]
     Active Substance: AXICABTAGENE CILOLEUCEL
     Indication: HIGH-GRADE B-CELL LYMPHOMA
     Route: 042
     Dates: start: 20180402, end: 20180402

REACTIONS (1)
  - Spleen disorder [Unknown]

NARRATIVE: CASE EVENT DATE: 20180502
